FAERS Safety Report 12939699 (Version 1)
Quarter: 2016Q4

REPORT INFORMATION
  Report Type: Spontaneous
  Country: US (occurrence: US)
  Receive Date: 20161115
  Receipt Date: 20161115
  Transmission Date: 20170207
  Serious: No
  Sender: FDA-Public Use
  Company Number: US-BAYER-2016-218245

PATIENT
  Age: 59 Year
  Sex: Male
  Weight: 90.7 kg

DRUGS (7)
  1. HYDROCHLOROTHIAZIDE W/ZOFENOPRIL CALCIUM [Concomitant]
  2. LISINOPRIL. [Concomitant]
     Active Substance: LISINOPRIL
  3. IRON [Concomitant]
     Active Substance: IRON
  4. FERROUS SULFATE. [Concomitant]
     Active Substance: FERROUS SULFATE
  5. DOCUSATE SODIUM. [Concomitant]
     Active Substance: DOCUSATE SODIUM
  6. BAYER LOW DOSE [Concomitant]
     Active Substance: ASPIRIN
     Indication: PROPHYLAXIS
  7. MIRALAX [Suspect]
     Active Substance: POLYETHYLENE GLYCOL 3350
     Indication: PRODUCT USED FOR UNKNOWN INDICATION
     Dosage: 0.5 DF, QD
     Route: 048
     Dates: start: 20161101, end: 20161107

REACTIONS (1)
  - Product use issue [None]

NARRATIVE: CASE EVENT DATE: 20161101
